FAERS Safety Report 9689963 (Version 1)
Quarter: 2013Q4

REPORT INFORMATION
  Report Type: Spontaneous
  Country: US (occurrence: US)
  Receive Date: 20131115
  Receipt Date: 20131115
  Transmission Date: 20140711
  Serious: No
  Sender: FDA-Public Use
  Company Number: US-PFIZER INC-2013325673

PATIENT
  Sex: Female

DRUGS (1)
  1. LYRICA [Suspect]
     Dosage: UNK
     Dates: start: 2009, end: 2009

REACTIONS (2)
  - Swelling face [Unknown]
  - Local swelling [Unknown]
